FAERS Safety Report 7245475-8 (Version None)
Quarter: 2011Q1

REPORT INFORMATION
  Report Type: 
  Country: None (occurrence: None)
  Receive Date: 20110126
  Receipt Date: 20110117
  Transmission Date: 20110831
  Serious: Yes (Hospitalization, Other)
  Sender: FDA-Public Use
  Company Number: PHHY2010JP85842

PATIENT
  Age: 17 Year
  Sex: Male

DRUGS (10)
  1. SANDIMMUNE [Suspect]
     Indication: BONE MARROW TRANSPLANT
     Dosage: 3 MG/KG, BID (90 MG TWICE DAILY)
     Route: 041
     Dates: start: 20100413
  2. ETOPOSIDE [Concomitant]
     Indication: BONE MARROW TRANSPLANT
     Dosage: UNK
  3. ANTIBIOTICS [Concomitant]
  4. NEORAL [Suspect]
     Dosage: 300 MG, UNK
     Route: 048
  5. CYCLOPHOSPHAMIDE [Concomitant]
     Indication: BONE MARROW TRANSPLANT
     Dosage: UNK
  6. NEORAL [Suspect]
     Dosage: 250 MG, UNK
     Route: 048
  7. NEORAL [Suspect]
     Dosage: 150 MG, UNK
     Route: 048
  8. METHYLPREDNISOLONE [Concomitant]
     Indication: BONE MARROW TRANSPLANT
     Dosage: 1MG/KG/DAY
  9. PREDNISOLONE [Concomitant]
     Indication: BONE MARROW TRANSPLANT
     Dosage: UNK
  10. NEORAL [Suspect]
     Indication: BONE MARROW TRANSPLANT
     Dosage: 200 MG, UNK
     Route: 048

REACTIONS (12)
  - RENAL IMPAIRMENT [None]
  - OLIGURIA [None]
  - BACTERIAL INFECTION [None]
  - PYREXIA [None]
  - CAPILLARY LEAK SYNDROME [None]
  - URINE OUTPUT DECREASED [None]
  - TOXIC ENCEPHALOPATHY [None]
  - SKIN DISORDER [None]
  - BLOOD CREATININE INCREASED [None]
  - IMMUNOSUPPRESSANT DRUG LEVEL INCREASED [None]
  - ACUTE GRAFT VERSUS HOST DISEASE [None]
  - ENGRAFTMENT SYNDROME [None]
